FAERS Safety Report 7199330-2 (Version None)
Quarter: 2010Q4

REPORT INFORMATION
  Report Type: 
  Country: None (occurrence: None)
  Receive Date: 20101228
  Receipt Date: 20101222
  Transmission Date: 20110411
  Serious: Yes (Other)
  Sender: FDA-Public Use
  Company Number: FR-BRISTOL-MYERS SQUIBB COMPANY-15451164

PATIENT
  Age: 3 Week
  Sex: Female

DRUGS (3)
  1. AMOXICILLIN [Suspect]
     Indication: RESPIRATORY DISTRESS
  2. CEFOTAXIME SODIUM [Suspect]
     Indication: RESPIRATORY DISTRESS
  3. GENTAMICIN [Suspect]
     Indication: RESPIRATORY DISTRESS

REACTIONS (2)
  - HEPATITIS [None]
  - NEPHRITIS ALLERGIC [None]
